FAERS Safety Report 16933297 (Version 1)
Quarter: 2019Q4

REPORT INFORMATION
  Report Type: Spontaneous
  Country: FR (occurrence: FR)
  Receive Date: 20191018
  Receipt Date: 20191018
  Transmission Date: 20200122
  Serious: Yes (Other)
  Sender: FDA-Public Use
  Company Number: FR-US-PROVELL PHARMACEUTICALS LLC-8178684

PATIENT
  Sex: Female

DRUGS (6)
  1. LEVOTHYROX 150 NF [Suspect]
     Active Substance: LEVOTHYROXINE SODIUM
     Indication: POST PROCEDURAL HYPOTHYROIDISM
     Dates: start: 201705
  2. LEVOTHYROX 100 NF [Suspect]
     Active Substance: LEVOTHYROXINE SODIUM
     Indication: POST PROCEDURAL HYPOTHYROIDISM
     Dates: start: 201704
  3. LEXOMIL [Concomitant]
     Active Substance: BROMAZEPAM
     Indication: ANXIETY
     Dosage: ONE QUARTER EVERY EVENING.
  4. LEVOTHYROX 100 NF [Suspect]
     Active Substance: LEVOTHYROXINE SODIUM
     Dosage: 1 TABLET ON EVERY OTHER DAY
     Dates: start: 20170822
  5. LEVOTHYROX 75 NF [Suspect]
     Active Substance: LEVOTHYROXINE SODIUM
     Indication: POST PROCEDURAL HYPOTHYROIDISM
     Dosage: 1 TABLET ON EVERY OTHER DAY SINCE AN UNSPECIFIED DATE IN SEP 2017
     Dates: start: 201704
  6. LEVOTHYROX NF [Suspect]
     Active Substance: LEVOTHYROXINE SODIUM
     Indication: POST PROCEDURAL HYPOTHYROIDISM
     Dates: start: 2017, end: 2017

REACTIONS (40)
  - Fatigue [Unknown]
  - Musculoskeletal discomfort [Unknown]
  - Alopecia [Unknown]
  - Incoherent [Unknown]
  - Pain in extremity [Unknown]
  - Hot flush [Not Recovered/Not Resolved]
  - Loss of personal independence in daily activities [Unknown]
  - Dizziness [Unknown]
  - Dyspnoea [Unknown]
  - Weight increased [Unknown]
  - Hair colour changes [Unknown]
  - Formication [Unknown]
  - Tachycardia [Unknown]
  - Amnesia [Unknown]
  - Inappropriate schedule of product administration [Unknown]
  - Suicidal ideation [Unknown]
  - Depression [Unknown]
  - Blood pressure systolic abnormal [Unknown]
  - Nervousness [Unknown]
  - Visual impairment [Unknown]
  - Anger [Unknown]
  - Insomnia [Not Recovered/Not Resolved]
  - Muscle spasms [Unknown]
  - Vision blurred [Unknown]
  - Vertigo [Unknown]
  - Pain [Unknown]
  - Blood thyroid stimulating hormone abnormal [Recovering/Resolving]
  - Weight decreased [Not Recovered/Not Resolved]
  - Hyperhidrosis [Unknown]
  - Palpitations [Unknown]
  - Blood thyroid stimulating hormone increased [Unknown]
  - Gait disturbance [Unknown]
  - Back pain [Unknown]
  - Skin discolouration [Unknown]
  - Crying [Unknown]
  - Pyrexia [Unknown]
  - Irritability [Unknown]
  - Memory impairment [Unknown]
  - Dysstasia [Unknown]
  - Malaise [Unknown]

NARRATIVE: CASE EVENT DATE: 2017
